FAERS Safety Report 12234301 (Version 1)
Quarter: 2016Q2

REPORT INFORMATION
  Report Type: Spontaneous
  Country: GB (occurrence: GB)
  Receive Date: 20160404
  Receipt Date: 20160404
  Transmission Date: 20160815
  Serious: Yes (Other)
  Sender: FDA-Public Use
  Company Number: GB-SA-2016SA063898

PATIENT
  Age: 64 Year
  Sex: Male

DRUGS (3)
  1. ZALTRAP [Suspect]
     Active Substance: ZIV-AFLIBERCEPT
     Route: 065
  2. 5 FU [Suspect]
     Active Substance: FLUOROURACIL
     Route: 065
  3. 5 FU [Suspect]
     Active Substance: FLUOROURACIL
     Route: 065

REACTIONS (1)
  - Anal injury [Unknown]

NARRATIVE: CASE EVENT DATE: 20160325
